FAERS Safety Report 6609288-X (Version None)
Quarter: 2010Q1

REPORT INFORMATION
  Report Type: 
  Country: None (occurrence: None)
  Receive Date: 20100224
  Receipt Date: 20100211
  Transmission Date: 20100710
  Serious: Yes (Hospitalization)
  Sender: FDA-Public Use
  Company Number: 2009-190801-NL

PATIENT
  Age: 34 Year
  Sex: Female
  Weight: 92.5 kg

DRUGS (7)
  1. NUVARING [Suspect]
     Indication: CONTRACEPTION
     Dates: start: 20051201, end: 20060201
  2. PREDNISONE (CON.) [Concomitant]
  3. ASACOL (CON.) [Concomitant]
  4. PROTONIX (CON.) [Concomitant]
  5. LEXAPRO (CON.) [Concomitant]
  6. PROPOXYPHENE NAPSYLATE W/ ACETAMINOPHENE (CON.) [Concomitant]
  7. ZITHROMAX (CON.) [Concomitant]

REACTIONS (9)
  - CHILLS [None]
  - COLITIS [None]
  - COLITIS ULCERATIVE [None]
  - CONVULSION [None]
  - DEEP VEIN THROMBOSIS [None]
  - POSTOPERATIVE THROMBOSIS [None]
  - PULMONARY EMBOLISM [None]
  - PYREXIA [None]
  - RECTAL HAEMORRHAGE [None]
